APPROVED DRUG PRODUCT: VENLAFAXINE HYDROCHLORIDE
Active Ingredient: VENLAFAXINE HYDROCHLORIDE
Strength: EQ 150MG BASE
Dosage Form/Route: TABLET, EXTENDED RELEASE;ORAL
Application: A209193 | Product #001 | TE Code: AB
Applicant: DEXCEL PHARMA TECHNOLOGIES LTD
Approved: Oct 31, 2019 | RLD: No | RS: No | Type: RX